FAERS Safety Report 25664811 (Version 1)
Quarter: 2025Q3

REPORT INFORMATION
  Report Type: Spontaneous
  Country: MY (occurrence: MY)
  Receive Date: 20250811
  Receipt Date: 20250811
  Transmission Date: 20251021
  Serious: Yes (Death, Life-Threatening, Hospitalization)
  Sender: PFIZER
  Company Number: MY-MLMSERVICE-20250729-PI594031-00270-1

PATIENT
  Age: 7 Decade
  Sex: Female

DRUGS (1)
  1. METHYLPREDNISOLONE [Suspect]
     Active Substance: METHYLPREDNISOLONE
     Indication: COVID-19

REACTIONS (4)
  - Bronchopulmonary aspergillosis [Fatal]
  - Aspergillus infection [Fatal]
  - Pneumothorax [Fatal]
  - Off label use [Unknown]
